FAERS Safety Report 18841694 (Version 1)
Quarter: 2021Q1

REPORT INFORMATION
  Report Type: Spontaneous
  Country: CA (occurrence: CA)
  Receive Date: 20210203
  Receipt Date: 20210203
  Transmission Date: 20210419
  Serious: Yes (Other)
  Sender: FDA-Public Use
  Company Number: CA-IGSA-BIG0013055

PATIENT
  Age: 6 Year
  Sex: Female

DRUGS (7)
  1. GANCICLOVIR. [Suspect]
     Active Substance: GANCICLOVIR
     Indication: CYTOMEGALOVIRUS INFECTION
     Dosage: 7.5 MILLIGRAM/KILOGRAM, BID
  2. HUMAN NORMAL IMMUNOGLOBULIN (IV) [Suspect]
     Active Substance: HUMAN IMMUNOGLOBULIN G
     Indication: CYTOMEGALOVIRUS INFECTION
     Dosage: 1 DOSAGE FORM, B.I.WK.
     Route: 042
  3. FOSCOVIR [Concomitant]
     Indication: PRODUCT USED FOR UNKNOWN INDICATION
     Route: 042
  4. PREDNISONE. [Suspect]
     Active Substance: PREDNISONE
     Indication: IMMUNOSUPPRESSION
  5. MYCOPHENOLATE MOFETIL. [Suspect]
     Active Substance: MYCOPHENOLATE MOFETIL
     Indication: IMMUNOSUPPRESSION
  6. GANCICLOVIR. [Suspect]
     Active Substance: GANCICLOVIR
     Dosage: 10.0 MILLIGRAM/KILOGRAM, BID
  7. TACROLIMUS. [Suspect]
     Active Substance: TACROLIMUS
     Indication: IMMUNOSUPPRESSION

REACTIONS (4)
  - Product use issue [Unknown]
  - Drug resistance [Unknown]
  - Gastroenteritis [Unknown]
  - Cytomegalovirus infection [Unknown]
